FAERS Safety Report 12355261 (Version 1)
Quarter: 2016Q2

REPORT INFORMATION
  Report Type: Spontaneous
  Country: US (occurrence: US)
  Receive Date: 20160511
  Receipt Date: 20160511
  Transmission Date: 20160815
  Serious: No
  Sender: FDA-Public Use
  Company Number: US-ACTAVIS-2016-00051

PATIENT
  Age: 59 Year
  Sex: Female
  Weight: 63.5 kg

DRUGS (6)
  1. CYCLOBENZAPRINE HYDROCHLORIDE (ACTAVIS LABORATORIES FL) [Suspect]
     Active Substance: CYCLOBENZAPRINE HYDROCHLORIDE
     Indication: OSTEOARTHRITIS
  2. HYDROCODONE [Concomitant]
     Active Substance: HYDROCODONE
     Indication: PAIN
     Dosage: 1/2 TABLET 1 TO 2 TIMES A DAY, PRN
     Route: 065
     Dates: start: 201412
  3. CYCLOBENZAPRINE HYDROCHLORIDE (ACTAVIS LABORATORIES FL) [Suspect]
     Active Substance: CYCLOBENZAPRINE HYDROCHLORIDE
     Indication: OCCIPITAL NEURALGIA
  4. CYCLOBENZAPRINE HYDROCHLORIDE (ACTAVIS LABORATORIES FL) [Suspect]
     Active Substance: CYCLOBENZAPRINE HYDROCHLORIDE
     Indication: MUSCLE SPASMS
  5. DIAZEPAM. [Concomitant]
     Active Substance: DIAZEPAM
     Indication: MUSCLE RELAXANT THERAPY
     Dosage: 10 MG 1-3 TIMES A DAY, PRN
     Route: 065
     Dates: start: 2013
  6. CYCLOBENZAPRINE HYDROCHLORIDE (ACTAVIS LABORATORIES FL) [Suspect]
     Active Substance: CYCLOBENZAPRINE HYDROCHLORIDE
     Indication: ANALGESIC THERAPY
     Dosage: 10MG, TID/PRN
     Route: 048
     Dates: start: 201507

REACTIONS (1)
  - Drug ineffective [Recovered/Resolved]

NARRATIVE: CASE EVENT DATE: 201507
